FAERS Safety Report 20634942 (Version 1)
Quarter: 2022Q1

REPORT INFORMATION
  Report Type: Spontaneous
  Country: US (occurrence: US)
  Receive Date: 20220325
  Receipt Date: 20220325
  Transmission Date: 20220423
  Serious: No
  Sender: FDA-Public Use
  Company Number: US-NOVARTISTESTPH-NVSC2022US067886

PATIENT
  Sex: Female

DRUGS (1)
  1. TOBI PODHALER [Suspect]
     Active Substance: TOBRAMYCIN
     Indication: Pseudomonas infection
     Dosage: 112 MG, BID, (4 CAP IN MORNING AND 4 CAP IN EVENING)
     Route: 055

REACTIONS (5)
  - Incorrect dose administered [Unknown]
  - Product use complaint [Unknown]
  - Off label use [Unknown]
  - Dyspnoea [Unknown]
  - Cough [Unknown]
